FAERS Safety Report 10962926 (Version 1)
Quarter: 2015Q1

REPORT INFORMATION
  Report Type: Spontaneous
  Country: US (occurrence: US)
  Receive Date: 20150205
  Receipt Date: 20150205
  Transmission Date: 20150721
  Serious: Yes (Death, Hospitalization)
  Sender: FDA-Public Use
  Company Number: US-APOTEX-2015AP005962

PATIENT
  Age: 35 Year
  Sex: Female

DRUGS (1)
  1. LITHIUM CARBONATE. [Suspect]
     Active Substance: LITHIUM CARBONATE
     Indication: PRODUCT USED FOR UNKNOWN INDICATION
     Route: 048

REACTIONS (13)
  - Intentional product misuse [Fatal]
  - Electrocardiogram QT prolonged [Fatal]
  - Hypotension [Fatal]
  - Bradycardia [Fatal]
  - Brain death [Fatal]
  - Mental disorder [Unknown]
  - Unresponsive to stimuli [Fatal]
  - Lethargy [Unknown]
  - Agitation [Fatal]
  - Hyperreflexia [Unknown]
  - Renal failure [Fatal]
  - Metabolic acidosis [Fatal]
  - Tremor [Unknown]
